FAERS Safety Report 9289240 (Version 1)
Quarter: 2013Q2

REPORT INFORMATION
  Report Type: Spontaneous
  Country: US (occurrence: US)
  Receive Date: 20130514
  Receipt Date: 20130514
  Transmission Date: 20140414
  Serious: Yes (Other)
  Sender: FDA-Public Use
  Company Number: US-009507513-1110USA01956

PATIENT
  Sex: Female

DRUGS (2)
  1. FOSAMAX [Suspect]
     Indication: OSTEOPENIA
     Dosage: UNK
     Route: 048
  2. ALENDRONATE SODIUM [Suspect]

REACTIONS (3)
  - Femur fracture [Unknown]
  - Fracture nonunion [Not Recovered/Not Resolved]
  - Femur fracture [Unknown]
